FAERS Safety Report 18372547 (Version 1)
Quarter: 2020Q4

REPORT INFORMATION
  Report Type: Spontaneous
  Country: US (occurrence: US)
  Receive Date: 20201012
  Receipt Date: 20201012
  Transmission Date: 20210114
  Serious: Yes (Other)
  Sender: FDA-Public Use
  Company Number: US-PFIZER INC-2020384832

PATIENT
  Age: 9 Year
  Sex: Male

DRUGS (1)
  1. DILANTIN [Suspect]
     Active Substance: PHENYTOIN
     Dosage: 4 MG PER KILOGRAM OF BODY WEIGHT PER DAY
     Route: 048

REACTIONS (2)
  - Drug hypersensitivity [Unknown]
  - Pseudolymphoma [Unknown]
